FAERS Safety Report 7393812-6 (Version None)
Quarter: 2011Q1

REPORT INFORMATION
  Report Type: 
  Country: None (occurrence: None)
  Receive Date: 20110330
  Receipt Date: 20110330
  Transmission Date: 20110831
  Serious: Yes (Death, Life-Threatening, Hospitalization, Disabling, Congenital Anomaly, Other)
  Sender: FDA-Public Use
  Company Number: None

PATIENT
  Sex: Male
  Weight: 76.2043 kg

DRUGS (1)
  1. LIPITOR [Suspect]
     Dosage: ONCE DAILY PO
     Route: 048

REACTIONS (4)
  - MYOCARDIAL INFARCTION [None]
  - COLLATERAL CIRCULATION [None]
  - SUDDEN CARDIAC DEATH [None]
  - ARTERIOSCLEROSIS [None]
